FAERS Safety Report 7866274-X (Version None)
Quarter: 2011Q4

REPORT INFORMATION
  Report Type: 
  Country: None (occurrence: None)
  Receive Date: 20111028
  Receipt Date: 20110523
  Transmission Date: 20120403
  Serious: No
  Sender: FDA-Public Use
  Company Number: US-GLAXOSMITHKLINE-A0928574A

PATIENT
  Age: 45 Year
  Sex: Male

DRUGS (6)
  1. WELLBUTRIN [Concomitant]
  2. LISINOPRIL [Concomitant]
  3. VICODIN [Concomitant]
  4. XANAX [Concomitant]
  5. ADVAIR DISKUS 100/50 [Suspect]
     Indication: CHRONIC OBSTRUCTIVE PULMONARY DISEASE
     Dosage: 1PUFF TWICE PER DAY
     Route: 055
     Dates: start: 20110501
  6. CELEXA [Concomitant]

REACTIONS (3)
  - URTICARIA [None]
  - PRURITUS [None]
  - HYPERSENSITIVITY [None]
